FAERS Safety Report 9426644 (Version 1)
Quarter: 2013Q3

REPORT INFORMATION
  Report Type: Spontaneous
  Country: MX (occurrence: MX)
  Receive Date: 20130730
  Receipt Date: 20130730
  Transmission Date: 20140515
  Serious: Yes (Death, Life-Threatening)
  Sender: FDA-Public Use
  Company Number: MX-B.I. PHARMACEUTICALS,INC./RIDGEFIELD-2013-MX-00246MX

PATIENT
  Age: 87 Year
  Sex: Male
  Weight: 80 kg

DRUGS (3)
  1. PRADAXAR [Suspect]
     Indication: HIP ARTHROPLASTY
     Dosage: 110 MG
     Route: 048
     Dates: start: 201305
  2. ANTIBIOTICS [Concomitant]
  3. ANALGESICS [Concomitant]

REACTIONS (2)
  - Acute myocardial infarction [Fatal]
  - Post procedural haematoma [Recovered/Resolved]
